FAERS Safety Report 22180185 (Version 1)
Quarter: 2023Q2

REPORT INFORMATION
  Report Type: Report from Study
  Country: CA (occurrence: CA)
  Receive Date: 20230406
  Receipt Date: 20230406
  Transmission Date: 20230722
  Serious: Yes (Other)
  Sender: FDA-Public Use
  Company Number: CA-SUN PHARMACEUTICAL INDUSTRIES LTD-2023R1-384135

PATIENT
  Sex: Female

DRUGS (1)
  1. METHYLDOPA [Suspect]
     Active Substance: METHYLDOPA
     Indication: Hypertension
     Dosage: 250 MILLIGRAM
     Route: 065

REACTIONS (5)
  - Subclavian artery stenosis [Unknown]
  - Condition aggravated [Unknown]
  - Exposure during pregnancy [Unknown]
  - Abortion induced [Unknown]
  - Hypoplastic left heart syndrome [Unknown]
